FAERS Safety Report 7486390-4 (Version None)
Quarter: 2011Q2

REPORT INFORMATION
  Report Type: 
  Country: None (occurrence: None)
  Receive Date: 20110517
  Receipt Date: 20110510
  Transmission Date: 20111010
  Serious: Yes (Other)
  Sender: FDA-Public Use
  Company Number: JP-ASTRAZENECA-2011SE21632

PATIENT
  Age: 18222 Day
  Sex: Female

DRUGS (5)
  1. FUROSEMIDE [Suspect]
     Indication: ASCITES
     Route: 048
  2. LANSOPRAZOLE [Suspect]
     Indication: REFLUX OESOPHAGITIS
     Route: 048
  3. ALEVIATIN [Suspect]
     Indication: CONVULSION
  4. SEROQUEL [Suspect]
     Indication: PSYCHIATRIC SYMPTOM
     Route: 048
     Dates: end: 20101207
  5. ALDACTONE [Suspect]
     Indication: ASCITES
     Route: 048

REACTIONS (1)
  - ERYTHEMA MULTIFORME [None]
